FAERS Safety Report 24345013 (Version 1)
Quarter: 2024Q3

REPORT INFORMATION
  Report Type: Spontaneous
  Country: US (occurrence: US)
  Receive Date: 20240920
  Receipt Date: 20240920
  Transmission Date: 20241017
  Serious: No
  Sender: MERCK
  Company Number: US-009507513-2409USA006787

PATIENT
  Sex: Male
  Weight: 74.83 kg

DRUGS (3)
  1. KEYTRUDA [Suspect]
     Active Substance: PEMBROLIZUMAB
     Indication: Renal cancer
  2. LENVATINIB MESYLATE [Suspect]
     Active Substance: LENVATINIB MESYLATE
     Indication: Renal cancer
     Dosage: STRENGTH 18 MILLIGRAM (1-10 MILLIGRAM/2-4 MILLIGRAM) 5 DAY PK COMM
     Route: 048
     Dates: start: 20240709
  3. EVEROLIMUS [Concomitant]
     Active Substance: EVEROLIMUS

REACTIONS (1)
  - Hepatic enzyme increased [Not Recovered/Not Resolved]
